FAERS Safety Report 23636694 (Version 1)
Quarter: 2024Q1

REPORT INFORMATION
  Report Type: Spontaneous
  Country: NL (occurrence: NL)
  Receive Date: 20240315
  Receipt Date: 20240315
  Transmission Date: 20240410
  Serious: Yes (Life-Threatening)
  Sender: FDA-Public Use
  Company Number: None

PATIENT
  Age: 28 Year
  Sex: Female
  Weight: 75 kg

DRUGS (2)
  1. PROMETHAZINE [Suspect]
     Active Substance: PROMETHAZINE HYDROCHLORIDE
     Indication: Product used for unknown indication
     Dosage: 1 X PER DAY/PROMETHAZINE TABLET 25MG (HCL) / BRAND NAME NOT SPECIFIED
     Route: 065
     Dates: start: 20230901
  2. ARIPIPRAZOLE [Suspect]
     Active Substance: ARIPIPRAZOLE
     Indication: Tension
     Dosage: 1 X PER DAY/CAPSULE 2,5MG / BRAND NAME NOT SPECIFIED
     Route: 065
     Dates: start: 20220610

REACTIONS (3)
  - Visual impairment [Recovering/Resolving]
  - Syncope [Recovering/Resolving]
  - Dizziness [Recovering/Resolving]
